FAERS Safety Report 6329804-5 (Version None)
Quarter: 2009Q3

REPORT INFORMATION
  Report Type: 
  Country: None (occurrence: None)
  Receive Date: 20090826
  Receipt Date: 20090818
  Transmission Date: 20100115
  Serious: Yes (Death)
  Sender: FDA-Public Use
  Company Number: US-BAXTER-2009BH012970

PATIENT
  Age: 82 Year
  Sex: Female
  Weight: 56 kg

DRUGS (11)
  1. ATIVAN [Suspect]
     Indication: CONFUSIONAL STATE
     Route: 065
  2. ATIVAN [Suspect]
     Indication: AGITATION
     Route: 065
  3. HALDOL [Suspect]
     Indication: CONFUSIONAL STATE
     Route: 065
  4. HALDOL [Suspect]
     Indication: AGITATION
     Route: 065
  5. TYLENOL (CAPLET) [Concomitant]
     Indication: DRUG USE FOR UNKNOWN INDICATION
     Route: 065
  6. HEPARIN [Concomitant]
     Indication: DRUG USE FOR UNKNOWN INDICATION
     Route: 065
  7. DIGOXIN [Concomitant]
     Indication: DRUG USE FOR UNKNOWN INDICATION
     Route: 065
  8. PREVACID [Concomitant]
     Indication: DRUG USE FOR UNKNOWN INDICATION
     Route: 065
  9. MULTI-VITAMINS [Concomitant]
     Indication: DRUG USE FOR UNKNOWN INDICATION
     Route: 065
  10. LOPRESSOR [Concomitant]
     Indication: DRUG USE FOR UNKNOWN INDICATION
     Route: 065
  11. PLAVIX [Concomitant]
     Indication: DRUG USE FOR UNKNOWN INDICATION
     Route: 065

REACTIONS (17)
  - AZOTAEMIA [None]
  - CARDIAC ARREST [None]
  - CARDIAC FAILURE CONGESTIVE [None]
  - CHEYNE-STOKES RESPIRATION [None]
  - COMA [None]
  - CONFUSIONAL STATE [None]
  - CONGESTIVE CARDIOMYOPATHY [None]
  - CONVULSION [None]
  - ELECTROLYTE IMBALANCE [None]
  - LETHARGY [None]
  - LOSS OF CONSCIOUSNESS [None]
  - MALIGNANT HYPERTENSION [None]
  - METABOLIC ACIDOSIS [None]
  - PNEUMONIA [None]
  - RENAL FAILURE [None]
  - RENAL FAILURE CHRONIC [None]
  - RESPIRATORY DISTRESS [None]
